FAERS Safety Report 25893747 (Version 1)
Quarter: 2025Q4

REPORT INFORMATION
  Report Type: Spontaneous
  Country: SA (occurrence: SA)
  Receive Date: 20251008
  Receipt Date: 20251008
  Transmission Date: 20260118
  Serious: Yes (Hospitalization)
  Sender: MACLEODS
  Company Number: SA-MACLEODS PHARMA-MAC2025055557

PATIENT

DRUGS (14)
  1. METFORMIN [Suspect]
     Active Substance: METFORMIN HYDROCHLORIDE
     Indication: Blood glucose increased
     Route: 048
     Dates: start: 20240826
  2. DAPAGLIFLOZIN [Suspect]
     Active Substance: DAPAGLIFLOZIN
     Indication: Blood glucose increased
     Route: 065
     Dates: end: 20240820
  3. SITAGLIPTIN [Suspect]
     Active Substance: SITAGLIPTIN
     Indication: Blood glucose increased
     Route: 048
     Dates: start: 20240826, end: 202408
  4. INSULIN NOS [Concomitant]
     Active Substance: INSULIN NOS
     Indication: Product used for unknown indication
     Route: 042
     Dates: start: 20240822, end: 20240822
  5. INSULIN NOS [Concomitant]
     Active Substance: INSULIN NOS
     Route: 042
     Dates: start: 20240824, end: 2024
  6. DEXTROSE [Concomitant]
     Active Substance: DEXTROSE MONOHYDRATE
     Indication: Product used for unknown indication
     Dosage: 5% IN WATER OR NORMAL SALINE
     Route: 042
     Dates: start: 20240822, end: 20240822
  7. ENOXAPARIN [Concomitant]
     Active Substance: ENOXAPARIN
     Indication: Thrombosis prophylaxis
     Route: 065
     Dates: start: 20240822, end: 202408
  8. CLINDAMYCIN [Concomitant]
     Active Substance: CLINDAMYCIN
     Indication: Antibiotic therapy
     Route: 065
     Dates: start: 20240822, end: 202408
  9. APIXABAN [Concomitant]
     Active Substance: APIXABAN
     Indication: Prophylaxis
     Route: 065
     Dates: start: 20240823, end: 202408
  10. APIXABAN [Concomitant]
     Active Substance: APIXABAN
     Dosage: FULL ANTICOAGULATION DOSE
     Route: 065
     Dates: start: 20240825, end: 202408
  11. TRAMADOL [Concomitant]
     Active Substance: TRAMADOL
     Indication: Pain management
     Route: 065
     Dates: start: 20240823, end: 202408
  12. ACETAMINOPHEN [Concomitant]
     Active Substance: ACETAMINOPHEN
     Indication: Pain management
     Route: 065
     Dates: start: 20240823, end: 202408
  13. VANCOMYCIN [Concomitant]
     Active Substance: VANCOMYCIN
     Indication: Evidence based treatment
     Route: 065
     Dates: start: 202408, end: 202408
  14. CIPROFLOXACIN [Concomitant]
     Active Substance: CIPROFLOXACIN
     Indication: Evidence based treatment
     Route: 065
     Dates: start: 202408, end: 202408

REACTIONS (3)
  - Euglycaemic diabetic ketoacidosis [Recovered/Resolved]
  - Metabolic acidosis [Recovered/Resolved]
  - Dyspepsia [Recovered/Resolved]

NARRATIVE: CASE EVENT DATE: 20240801
